FAERS Safety Report 12581024 (Version 3)
Quarter: 2016Q3

REPORT INFORMATION
  Report Type: Spontaneous
  Country: JP (occurrence: JP)
  Receive Date: 20160721
  Receipt Date: 20160823
  Transmission Date: 20161109
  Serious: Yes (Death)
  Sender: FDA-Public Use
  Company Number: PHJP2016JP020517

PATIENT
  Age: 89 Year
  Sex: Female

DRUGS (6)
  1. STALEVO [Suspect]
     Active Substance: CARBIDOPA\ENTACAPONE\LEVODOPA
     Indication: PARKINSON^S DISEASE
     Dosage: 3 DF, QD (1 DF CARBIDOPA 10 MG/ ENTACAPONE 100 MG/LEVODOPA 100 MG)
     Route: 048
     Dates: start: 201606
  2. EXELON PATCH [Suspect]
     Active Substance: RIVASTIGMINE
     Indication: DEMENTIA ALZHEIMER^S TYPE
     Dosage: (PATCH2.5 (CM2), (CONTAIN 4.5 MG OF RIVASTIGMINE BASE),
     Route: 062
     Dates: start: 201412
  3. EXELON PATCH [Suspect]
     Active Substance: RIVASTIGMINE
     Dosage: (PATCH7.5 (CM2), (CONTAIN 13.5 MG OF RIVASTIGMINE BASE)
     Route: 062
  4. NEODOPASTON [Concomitant]
     Active Substance: CARBIDOPA\LEVODOPA
     Indication: PARKINSON^S DISEASE
     Dosage: 100 MG, TID
     Route: 065
     Dates: end: 201606
  5. EXELON PATCH [Suspect]
     Active Substance: RIVASTIGMINE
     Dosage: (PATCH5 (CM2), (CONTAIN 9 MG OF RIVASTIGMINE BASE)
     Route: 062
  6. EXELON PATCH [Suspect]
     Active Substance: RIVASTIGMINE
     Dosage: (PATCH10 (CM2), (CONTAIN 18 MG OF RIVASTIGMINEBASE)
     Route: 062
     Dates: start: 201503

REACTIONS (3)
  - Lacunar infarction [Fatal]
  - Blood pressure increased [Unknown]
  - Snoring [Fatal]

NARRATIVE: CASE EVENT DATE: 20160628
